FAERS Safety Report 8458130-3 (Version None)
Quarter: 2012Q2

REPORT INFORMATION
  Report Type: 
  Country: None (occurrence: None)
  Receive Date: 20120622
  Receipt Date: 20120612
  Transmission Date: 20120825
  Serious: Yes (Hospitalization, Other)
  Sender: FDA-Public Use
  Company Number: CA-JNJFOC-20120602735

PATIENT
  Sex: Female
  Weight: 70 kg

DRUGS (13)
  1. METHOTREXATE [Concomitant]
     Indication: RHEUMATOID ARTHRITIS
     Route: 058
  2. PREDNISONE TAB [Concomitant]
     Indication: RHEUMATOID ARTHRITIS
     Dosage: ALTERNATE DAYS
     Route: 048
  3. PREDNISONE TAB [Concomitant]
     Dosage: ALTERNATE DAYS
     Route: 048
  4. ACEBUTOLOL [Concomitant]
     Indication: CARDIAC DISORDER
     Dosage: ONCE IN A DAY
     Route: 048
  5. SYNTHROID [Concomitant]
     Indication: THYROID DISORDER
     Route: 065
  6. PREGABALIN [Concomitant]
     Indication: PAIN
     Route: 048
  7. AMITRIPTYLINE HCL [Concomitant]
     Indication: SEDATION
     Route: 065
  8. HYDROCHLOROTHIAZIDE [Concomitant]
     Indication: HYPERTENSION
     Route: 065
  9. CEPHALEXIN [Concomitant]
     Indication: ARTHRITIS BACTERIAL
     Route: 048
  10. OXYCODONE HCL [Concomitant]
     Indication: PAIN
     Route: 048
  11. REMICADE [Suspect]
     Indication: RHEUMATOID ARTHRITIS
     Route: 042
     Dates: start: 20081218
  12. REMICADE [Suspect]
     Dosage: DOSE NUMBER 16
     Route: 042
     Dates: start: 20110315, end: 20110315
  13. FOLIC ACID [Concomitant]
     Indication: RHEUMATOID ARTHRITIS
     Route: 048

REACTIONS (2)
  - GASTROENTERITIS VIRAL [None]
  - HYPOKALAEMIA [None]
